FAERS Safety Report 6186334-1 (Version None)
Quarter: 2009Q2

REPORT INFORMATION
  Report Type: 
  Country: None (occurrence: None)
  Receive Date: 20090511
  Receipt Date: 20090504
  Transmission Date: 20091009
  Serious: Yes (Other)
  Sender: FDA-Public Use
  Company Number: US-AVENTIS-200913869US

PATIENT
  Sex: Male

DRUGS (3)
  1. LANTUS [Suspect]
     Dosage: DOSE: 45 UNITS IN AM AND 45 UNITS IN PM
     Route: 058
     Dates: start: 20080101
  2. OPTICLIK (INSULIN INJECTION PEN) [Suspect]
  3. UNKNOWN DRUG [Concomitant]
     Dosage: DOSE: UNK

REACTIONS (3)
  - BLOOD GLUCOSE INCREASED [None]
  - FALL [None]
  - NERVE INJURY [None]
